FAERS Safety Report 5207981-7 (Version None)
Quarter: 2007Q1

REPORT INFORMATION
  Report Type: 
  Country: None (occurrence: None)
  Receive Date: 20070110
  Receipt Date: 20070102
  Transmission Date: 20070707
  Serious: Yes (Hospitalization)
  Sender: FDA-Public Use
  Company Number: DEWYE006103JAN07

PATIENT
  Sex: Female

DRUGS (2)
  1. TREVILOR RETARD (VENLAFAXINE HYDROCHLORIDE, CAPSULE, EXTENDED RELEASE, [Suspect]
     Dosage: 75 MG 3X PER 1 DAY;
     Dates: start: 20060101
  2. ALCOHOL (ETHANOL, , 0) [Suspect]

REACTIONS (2)
  - ALCOHOL INTERACTION [None]
  - DRUG INEFFECTIVE [None]
